FAERS Safety Report 7318648-3 (Version None)
Quarter: 2011Q1

REPORT INFORMATION
  Report Type: 
  Country: None (occurrence: None)
  Receive Date: 20110228
  Receipt Date: 20110223
  Transmission Date: 20110831
  Serious: Yes (Other)
  Sender: FDA-Public Use
  Company Number: LU-BRISTOL-MYERS SQUIBB COMPANY-15567332

PATIENT
  Age: 19 Year
  Sex: Male
  Weight: 100 kg

DRUGS (2)
  1. ABILIFY [Suspect]
     Dosage: DOSE INCREASED TO 10MG/D AND THEN 15MG/D
  2. SEROQUEL [Suspect]

REACTIONS (1)
  - HYPOMANIA [None]
